FAERS Safety Report 15985067 (Version 2)
Quarter: 2019Q1

REPORT INFORMATION
  Report Type: Report from Study
  Country: JP (occurrence: JP)
  Receive Date: 20190220
  Receipt Date: 20190318
  Transmission Date: 20190418
  Serious: Yes (Death)
  Sender: FDA-Public Use
  Company Number: JP-PFIZER INC-2019071293

PATIENT
  Sex: Female

DRUGS (1)
  1. REVATIO [Suspect]
     Active Substance: SILDENAFIL CITRATE
     Indication: PULMONARY HYPERTENSION
     Dosage: 1 MG, 3X/DAY

REACTIONS (2)
  - Hypoplastic left heart syndrome [Fatal]
  - Congenital pulmonary artery anomaly [Fatal]

NARRATIVE: CASE EVENT DATE: 20170801
